FAERS Safety Report 9719421 (Version 1)
Quarter: 2013Q4

REPORT INFORMATION
  Report Type: Spontaneous
  Country: US (occurrence: US)
  Receive Date: 20131128
  Receipt Date: 20131128
  Transmission Date: 20140711
  Serious: Yes (Other)
  Sender: FDA-Public Use
  Company Number: 2013SP008148

PATIENT
  Age: 54 Year
  Sex: Male

DRUGS (3)
  1. HALOPERIDOL DECANOATE [Suspect]
     Indication: SCHIZOPHRENIA
  2. RISPERIDONE [Suspect]
     Indication: SCHIZOPHRENIA
     Route: 030
  3. DIVALPROEX [Suspect]
     Indication: SCHIZOPHRENIA

REACTIONS (3)
  - Parkinsonism [Unknown]
  - Tardive dyskinesia [Unknown]
  - Erectile dysfunction [Unknown]
